FAERS Safety Report 6330533-2 (Version None)
Quarter: 2009Q3

REPORT INFORMATION
  Report Type: 
  Country: None (occurrence: None)
  Receive Date: 20090827
  Receipt Date: 20090402
  Transmission Date: 20100115
  Serious: No
  Sender: FDA-Public Use
  Company Number: A0778011A

PATIENT
  Sex: Female

DRUGS (1)
  1. ZOVIRAX [Suspect]

REACTIONS (2)
  - HYPERSENSITIVITY [None]
  - RASH MACULO-PAPULAR [None]
